FAERS Safety Report 5565902-1 (Version None)
Quarter: 2007Q4

REPORT INFORMATION
  Report Type: 
  Country: None (occurrence: None)
  Receive Date: 20071213
  Receipt Date: 20071130
  Transmission Date: 20080405
  Serious: Yes (Hospitalization)
  Sender: FDA-Public Use
  Company Number: 100#03#2007-05044

PATIENT
  Age: 68 Year
  Sex: Male

DRUGS (3)
  1. DOXYCYCLINE [Suspect]
     Indication: SINUSITIS
     Dosage: 200 MG FOUR TIMES DAILY ORAL
     Route: 048
     Dates: start: 20061107
  2. DOXYCYCLINE [Suspect]
     Indication: TOOTH ABSCESS
     Dosage: 200 MG FOUR TIMES DAILY ORAL
     Route: 048
     Dates: start: 20061107
  3. EPILIM  CHRONOSPHERE                  (VALPROIC ACID) [Suspect]
     Indication: EPILEPSY
     Dosage: 300 MG TWICE ORAL
     Route: 048
     Dates: start: 19840604

REACTIONS (5)
  - CONVULSION [None]
  - DRUG INTERACTION [None]
  - INCORRECT DOSE ADMINISTERED [None]
  - SINUSITIS [None]
  - TOOTH ABSCESS [None]
